FAERS Safety Report 8305764-2 (Version None)
Quarter: 2012Q2

REPORT INFORMATION
  Report Type: 
  Country: None (occurrence: None)
  Receive Date: 20120423
  Receipt Date: 20120416
  Transmission Date: 20120825
  Serious: Yes (Other)
  Sender: FDA-Public Use
  Company Number: US-BAYER-2012-037335

PATIENT
  Age: 78 Year
  Sex: Female
  Weight: 59 kg

DRUGS (7)
  1. SYNTHROID [Concomitant]
  2. VITAMIN D [Concomitant]
  3. CRESTOR [Concomitant]
  4. ASPIRIN [Concomitant]
     Dosage: 81 MG, UNK
  5. FISH OIL [Concomitant]
  6. PRESERVISION EYE VITAMIN AND MINERAL SUPPL. [Concomitant]
  7. CAMPHO-PHENIQUE ANTISEPTIC COLD SORE GEL WITH DA [Suspect]
     Dosage: UNK
     Route: 047
     Dates: end: 20120416

REACTIONS (3)
  - OCULAR HYPERAEMIA [None]
  - VISION BLURRED [None]
  - EYE IRRITATION [None]
